FAERS Safety Report 12169186 (Version 2)
Quarter: 2016Q2

REPORT INFORMATION
  Report Type: Other
  Country: DE (occurrence: DE)
  Receive Date: 20160310
  Receipt Date: 20160415
  Transmission Date: 20160815
  Serious: Yes (Other)
  Sender: FDA-Public Use
  Company Number: DE-MYLANLABS-2016M1010067

PATIENT

DRUGS (2)
  1. QUETIAPINE. [Suspect]
     Active Substance: QUETIAPINE
     Indication: DEPRESSION
     Dosage: UNK
     Route: 048
     Dates: start: 2009
  2. VENLAFAXIN NEURAXPHARM [Suspect]
     Active Substance: VENLAFAXINE HYDROCHLORIDE
     Indication: DEPRESSION
     Dosage: 150 MG, UNK
     Route: 048
     Dates: start: 2012

REACTIONS (24)
  - Incontinence [Recovered/Resolved]
  - Dyspnoea [Recovering/Resolving]
  - Peripheral swelling [Recovering/Resolving]
  - Loose tooth [Recovering/Resolving]
  - Gait disturbance [Recovered/Resolved]
  - Palpitations [Recovering/Resolving]
  - Skin exfoliation [Unknown]
  - Abnormal dreams [Recovering/Resolving]
  - Heart rate irregular [Recovering/Resolving]
  - Musculoskeletal stiffness [Recovering/Resolving]
  - Breast engorgement [Recovering/Resolving]
  - Anal incontinence [Recovering/Resolving]
  - Urinary incontinence [Recovering/Resolving]
  - Potentiating drug interaction [Recovering/Resolving]
  - Blood pressure increased [Unknown]
  - Weight increased [Recovering/Resolving]
  - Hyperhidrosis [Recovered/Resolved]
  - Nasal congestion [Recovering/Resolving]
  - Pruritus [Recovering/Resolving]
  - Dry mouth [Recovering/Resolving]
  - Heart rate increased [Recovering/Resolving]
  - Hypoaesthesia [Recovering/Resolving]
  - Somnolence [Recovering/Resolving]
  - Speech disorder [Recovering/Resolving]
